FAERS Safety Report 21227653 (Version 1)
Quarter: 2022Q3

REPORT INFORMATION
  Report Type: Spontaneous
  Country: CN (occurrence: CN)
  Receive Date: 20220818
  Receipt Date: 20220818
  Transmission Date: 20221026
  Serious: Yes (Hospitalization, Other)
  Sender: FDA-Public Use
  Company Number: CN-Accord-272751

PATIENT
  Age: 77 Year
  Sex: Female

DRUGS (3)
  1. GEMCITABINE [Suspect]
     Active Substance: GEMCITABINE
     Indication: Diffuse large B-cell lymphoma
     Dosage: RECEIVED TOTAL 9 CYCLES
  2. OXALIPLATIN [Suspect]
     Active Substance: OXALIPLATIN
     Indication: Diffuse large B-cell lymphoma
     Dosage: RECEIVED TOTAL 9 CYCLES
  3. RITUXIMAB [Suspect]
     Active Substance: RITUXIMAB
     Indication: Diffuse large B-cell lymphoma
     Dosage: RECEIVED TOTAL 9 CYCLES

REACTIONS (5)
  - Respiratory tract infection [Unknown]
  - Abdominal infection [Unknown]
  - Cardiac failure [Unknown]
  - Atrial fibrillation [Unknown]
  - Electrolyte imbalance [Unknown]
